FAERS Safety Report 7733048-X (Version None)
Quarter: 2011Q3

REPORT INFORMATION
  Report Type: 
  Country: None (occurrence: None)
  Receive Date: 20110907
  Receipt Date: 20110830
  Transmission Date: 20111222
  Serious: Yes (Other)
  Sender: FDA-Public Use
  Company Number: US-PFIZER INC-2011202916

PATIENT
  Sex: Male
  Weight: 126 kg

DRUGS (4)
  1. NORCO [Concomitant]
     Dosage: 10/325 MG, UNK
     Route: 048
  2. LYRICA [Suspect]
     Dosage: 50 MG, UNK
     Route: 048
  3. AMBIEN [Concomitant]
     Indication: SLEEP APNOEA SYNDROME
     Dosage: UNK
     Route: 048
  4. LYRICA [Suspect]
     Indication: NEUROPATHY PERIPHERAL
     Dosage: 75 MG, UNK
     Route: 048

REACTIONS (7)
  - DRUG INTOLERANCE [None]
  - PAIN [None]
  - DRY MOUTH [None]
  - FEELING ABNORMAL [None]
  - NERVOUSNESS [None]
  - VISION BLURRED [None]
  - HANGOVER [None]
